FAERS Safety Report 4713146-5 (Version None)
Quarter: 2005Q3

REPORT INFORMATION
  Report Type: 
  Country: None (occurrence: None)
  Receive Date: 20050701
  Receipt Date: 20040820
  Transmission Date: 20060218
  Serious: Yes (Other)
  Sender: FDA-Public Use
  Company Number: 2004039104

PATIENT
  Age: 15 Year
  Sex: Male
  Weight: 83.9154 kg

DRUGS (3)
  1. ZOLOFT [Suspect]
     Indication: DEPRESSION
     Dosage: 100 MG (100 MG, 1 IN 1 D), ORAL
     Route: 048
     Dates: start: 20040101
  2. LAMOTRIGINE [Suspect]
     Indication: AFFECTIVE DISORDER
     Dosage: 100 MG (50 MG, 2 IN 1 D), ORAL
     Route: 048
     Dates: start: 20031001
  3. ATOMOXETINE HYDROCHLORIDE [Concomitant]

REACTIONS (5)
  - ALLERGY TO CHEMICALS [None]
  - ARTHRALGIA [None]
  - STEVENS-JOHNSON SYNDROME [None]
  - SWELLING FACE [None]
  - URTICARIA [None]
